FAERS Safety Report 25767169 (Version 1)
Quarter: 2025Q3

REPORT INFORMATION
  Report Type: Other
  Country: EU (occurrence: EU)
  Receive Date: 20250905
  Receipt Date: 20250905
  Transmission Date: 20251020
  Serious: Yes (Hospitalization, Other)
  Sender: ZHEJIANG YONGTAI
  Company Number: EU-Zhejiang Yongtai pharmaceuticals Co..,Ltd.-2183909

PATIENT
  Age: 78 Year
  Sex: Female

DRUGS (2)
  1. ROSUVASTATIN CALCIUM [Suspect]
     Active Substance: ROSUVASTATIN CALCIUM
     Indication: Coronary artery disease
  2. DAPAGLIFLOZIN [Interacting]
     Active Substance: DAPAGLIFLOZIN

REACTIONS (3)
  - Rhabdomyolysis [Recovered/Resolved]
  - Drug interaction [Unknown]
  - Acute kidney injury [Recovering/Resolving]
